FAERS Safety Report 20171919 (Version 1)
Quarter: 2021Q4

REPORT INFORMATION
  Report Type: Spontaneous
  Country: NL (occurrence: NL)
  Receive Date: 20211210
  Receipt Date: 20211210
  Transmission Date: 20220303
  Serious: Yes (Death)
  Sender: FDA-Public Use
  Company Number: NL-PFIZER INC-202101719370

PATIENT
  Age: 63 Year
  Sex: Male

DRUGS (1)
  1. REVATIO [Suspect]
     Active Substance: SILDENAFIL CITRATE
     Indication: Pulmonary hypertension
     Dosage: 20 MG, 3X/DAY
     Route: 048

REACTIONS (1)
  - Death [Fatal]
